FAERS Safety Report 9657346 (Version 1)
Quarter: 2013Q4

REPORT INFORMATION
  Report Type: Spontaneous
  Country: GB (occurrence: GB)
  Receive Date: 20131030
  Receipt Date: 20131030
  Transmission Date: 20140711
  Serious: Yes (Other)
  Sender: FDA-Public Use
  Company Number: GB-GLAXOSMITHKLINE-B0933827A

PATIENT
  Age: 65 Year
  Sex: Female

DRUGS (1)
  1. REQUIP XL [Suspect]
     Indication: ORTHOSTATIC TREMOR
     Dosage: 1IUAX PER DAY
     Route: 048
     Dates: start: 20131007

REACTIONS (2)
  - Abasia [Recovered/Resolved]
  - Balance disorder [Recovered/Resolved]
